FAERS Safety Report 8366411-7 (Version None)
Quarter: 2012Q2

REPORT INFORMATION
  Report Type: 
  Country: None (occurrence: None)
  Receive Date: 20120517
  Receipt Date: 20120509
  Transmission Date: 20120825
  Serious: Yes (Life-Threatening)
  Sender: FDA-Public Use
  Company Number: JP-PFIZER INC-2012111410

PATIENT
  Age: 67 Year
  Sex: Female

DRUGS (16)
  1. ALBUMIN TANNATE [Concomitant]
     Dosage: UNK
     Route: 048
  2. MEROPENEM [Concomitant]
     Dosage: 1 G, DAILY
     Route: 042
     Dates: start: 20120411, end: 20120420
  3. PYRINAZIN [Concomitant]
     Dosage: UNK
     Route: 048
  4. VANCOMYCIN [Concomitant]
     Dosage: 0.25 G, 2X/WEEK
     Dates: start: 20120202, end: 20120215
  5. LANSOPRAZOLE [Concomitant]
     Dosage: UNK
     Route: 048
  6. DEPAKENE [Concomitant]
     Dosage: UNK
     Route: 048
  7. ALFAROL [Concomitant]
     Dosage: UNK
     Route: 048
  8. LENDORMIN [Concomitant]
     Dosage: UNK
     Route: 048
  9. MEROPENEM [Concomitant]
     Dosage: 2 G, DAILY
     Route: 042
     Dates: start: 20120427, end: 20120506
  10. CLINDAMYCIN HCL [Suspect]
     Indication: PROPHYLAXIS
  11. MEROPENEM [Concomitant]
     Dosage: 0.5 G, DAILY
     Route: 042
     Dates: start: 20120117, end: 20120216
  12. MICAFUNGIN SODIUM [Concomitant]
     Dosage: UNK
     Dates: start: 20120505, end: 20120506
  13. CEFAZOLIN SODIUM [Concomitant]
     Dosage: UNK
     Route: 048
  14. CLINDAMYCIN HCL [Suspect]
     Indication: INFECTION
     Dosage: 1200 G, 2X/DAY
     Route: 042
     Dates: start: 20120411, end: 20120506
  15. AMBISOME [Concomitant]
     Dosage: UNK
     Dates: start: 20120425, end: 20120504
  16. VANCOMYCIN [Concomitant]
     Dosage: 0.25 G, 2X/WEEK
     Dates: start: 20120427, end: 20120506

REACTIONS (1)
  - DRUG ERUPTION [None]
